FAERS Safety Report 7756775-7 (Version None)
Quarter: 2011Q3

REPORT INFORMATION
  Report Type: 
  Country: None (occurrence: None)
  Receive Date: 20110916
  Receipt Date: 20110913
  Transmission Date: 20111222
  Serious: Yes (Other)
  Sender: FDA-Public Use
  Company Number: DE-ROXANE LABORATORIES, INC.-2011-RO-01264RO

PATIENT
  Age: 62 Year
  Sex: Female

DRUGS (6)
  1. AZATHIOPRINE [Suspect]
     Indication: TEMPORAL ARTERITIS
  2. METHOTREXATE [Suspect]
     Indication: TEMPORAL ARTERITIS
  3. GLUCOCORTICOID [Concomitant]
     Indication: TEMPORAL ARTERITIS
  4. TRIMETHOPRIM + SULFAMETHOXAZOLE [Suspect]
     Indication: ANTIFUNGAL PROPHYLAXIS
  5. CYCLOPHOSPHAMIDE [Suspect]
     Indication: TEMPORAL ARTERITIS
  6. 2-MERCAPTOETHANESULFONIC ACID [Suspect]

REACTIONS (9)
  - VARICELLA [None]
  - PNEUMOCYSTIS JIROVECI PNEUMONIA [None]
  - WEIGHT DECREASED [None]
  - TEMPORAL ARTERITIS [None]
  - URINARY TRACT INFECTION [None]
  - BACK PAIN [None]
  - STREPTOCOCCAL SEPSIS [None]
  - DISEASE RECURRENCE [None]
  - HEPATOTOXICITY [None]
